FAERS Safety Report 25274839 (Version 2)
Quarter: 2025Q2

REPORT INFORMATION
  Report Type: Spontaneous
  Country: US (occurrence: None)
  Receive Date: 20250506
  Receipt Date: 20250512
  Transmission Date: 20250717
  Serious: Yes (Other)
  Sender: INCYTE
  Company Number: US-002147023-NVSC2025US067376

PATIENT
  Age: 7 Year

DRUGS (3)
  1. JAKAFI [Suspect]
     Active Substance: RUXOLITINIB
     Indication: Immune system disorder
     Dosage: 10 MG, BID (FOR 17D PRIOR TO HSCT)
     Route: 065
  2. JAKAFI [Suspect]
     Active Substance: RUXOLITINIB
     Indication: Immunosuppression
  3. JAKAFI [Suspect]
     Active Substance: RUXOLITINIB
     Indication: Infection

REACTIONS (2)
  - Pancreatitis [Unknown]
  - Off label use [Unknown]
